FAERS Safety Report 8832360 (Version 1)
Quarter: 2012Q4

REPORT INFORMATION
  Report Type: 
  Country: AU (occurrence: AU)
  Receive Date: 20121009
  Receipt Date: 20121009
  Transmission Date: 20130627
  Serious: Yes (Life-Threatening, Hospitalization)
  Sender: FDA-Public Use
  Company Number: AU-ROCHE-1141685

PATIENT
  Sex: Male

DRUGS (1)
  1. MABTHERA [Suspect]
     Indication: BURKITT^S LYMPHOMA
     Route: 065

REACTIONS (2)
  - Gastrointestinal haemorrhage [Unknown]
  - Malaise [Unknown]
